FAERS Safety Report 4817074-6 (Version None)
Quarter: 2005Q3

REPORT INFORMATION
  Report Type: 
  Country: None (occurrence: None)
  Receive Date: 20050929
  Receipt Date: 20050608
  Transmission Date: 20060218
  Serious: No
  Sender: FDA-Public Use
  Company Number: 05P-163-0302592-00

PATIENT
  Age: 42 Year
  Sex: Female
  Weight: 77.1115 kg

DRUGS (10)
  1. HUMIRA [Suspect]
     Indication: RHEUMATOID ARTHRITIS
     Dosage: 40 MG, 1 IN 2 WK, SUBCUTANEOUS
     Route: 058
     Dates: start: 20050201
  2. LEVOTHYROXINE SODIUM [Concomitant]
  3. ZOCOR [Concomitant]
  4. PANTOPRAZOLE [Concomitant]
  5. ALLEGRA [Concomitant]
  6. LEVACOR [Concomitant]
  7. METHOTREXATE [Concomitant]
  8. TRAZODONE HCL [Concomitant]
  9. PREDNISONE [Concomitant]
  10. BIRTH CONTROL PILLS [Concomitant]

REACTIONS (6)
  - BRONCHITIS [None]
  - EAR INFECTION [None]
  - NECK PAIN [None]
  - PAIN [None]
  - PYREXIA [None]
  - SINUSITIS [None]
